FAERS Safety Report 4772979-X (Version None)
Quarter: 2005Q3

REPORT INFORMATION
  Report Type: 
  Country: None (occurrence: None)
  Receive Date: 20050919
  Receipt Date: 20050912
  Transmission Date: 20060218
  Serious: Yes (Life-Threatening, Hospitalization)
  Sender: FDA-Public Use
  Company Number: PHRM2005FR02426

PATIENT
  Age: 55 Year
  Sex: Male
  Weight: 95 kg

DRUGS (7)
  1. GLEEVEC [Suspect]
     Indication: CHRONIC MYELOID LEUKAEMIA
     Dosage: 400 MG/DAY
     Route: 048
     Dates: start: 20010716, end: 20030201
  2. GLEEVEC [Suspect]
     Dosage: 600 MG/DAY
     Route: 048
     Dates: start: 20030201, end: 20030601
  3. GLEEVEC [Suspect]
     Dosage: 400 MG/DAY
     Route: 048
     Dates: start: 20030601, end: 20040101
  4. GLEEVEC [Suspect]
     Dosage: 600 MG:DAY
     Route: 048
     Dates: start: 20040101
  5. TENORMIN [Concomitant]
  6. DETENSIEL [Concomitant]
     Route: 048
  7. BEFIZAL [Concomitant]
     Route: 048

REACTIONS (2)
  - BLADDER CANCER STAGE II [None]
  - BLADDER NEOPLASM SURGERY [None]
